FAERS Safety Report 11860142 (Version 1)
Quarter: 2015Q4

REPORT INFORMATION
  Report Type: Spontaneous
  Country: US (occurrence: US)
  Receive Date: 20151222
  Receipt Date: 20151222
  Transmission Date: 20160305
  Serious: No
  Sender: FDA-Public Use
  Company Number: US-009507513-1512USA006428

PATIENT
  Sex: Female

DRUGS (1)
  1. NEXPLANON [Suspect]
     Active Substance: ETONOGESTREL
     Indication: CONTRACEPTION
     Dosage: 68 MG / ONE ROD PER 3 YEARS
     Route: 059
     Dates: start: 20131212

REACTIONS (3)
  - Device breakage [Not Recovered/Not Resolved]
  - No adverse event [Unknown]
  - Contusion [Unknown]

NARRATIVE: CASE EVENT DATE: 20151126
